FAERS Safety Report 4690110-6 (Version None)
Quarter: 2005Q2

REPORT INFORMATION
  Report Type: 
  Country: None (occurrence: None)
  Receive Date: 20050613
  Receipt Date: 20050531
  Transmission Date: 20051028
  Serious: Yes (Death, Life-Threatening, Hospitalization)
  Sender: FDA-Public Use
  Company Number: 106784ISR

PATIENT
  Age: 73 Year
  Sex: Male

DRUGS (2)
  1. METHOTREXATE [Suspect]
     Indication: POLYARTHRITIS
     Dosage: ORAL
     Route: 048
     Dates: start: 20040801, end: 20050105
  2. ENBREL [Suspect]
     Indication: POLYARTHRITIS
     Dosage: ORAL
     Route: 048
     Dates: start: 20040801, end: 20050105

REACTIONS (6)
  - ACUTE RESPIRATORY DISTRESS SYNDROME [None]
  - LYMPHADENITIS [None]
  - MEDIASTINITIS [None]
  - SEPTIC SHOCK [None]
  - SYNOVITIS [None]
  - TUBERCULOSIS [None]
